FAERS Safety Report 9705179 (Version 2)
Quarter: 2014Q1

REPORT INFORMATION
  Report Type: Spontaneous
  Country: US (occurrence: US)
  Receive Date: 20131122
  Receipt Date: 20140121
  Transmission Date: 20141002
  Serious: Yes (Hospitalization, Other)
  Sender: FDA-Public Use
  Company Number: US-009507513-1311USA006833

PATIENT
  Age: 86 Year
  Sex: Female

DRUGS (5)
  1. ASMANEX TWISTHALER [Suspect]
     Indication: CARCINOID SYNDROME
     Dosage: UNK UNK, BID, 1 INHALATION IN THE MORNING AND 1 INHALATION IN THE EVENING (220 Y)
     Route: 055
     Dates: start: 2012
  2. ASMANEX TWISTHALER [Suspect]
     Indication: PROPHYLAXIS
  3. COLCHICINE [Suspect]
     Dosage: UNK UNK, QD, 1-2 TIMES DAILY
     Dates: start: 2013
  4. FLOMAX (MORNIFLUMATE) [Concomitant]
     Dosage: UNK
  5. NEXIUM [Concomitant]
     Dosage: UNK

REACTIONS (14)
  - Thoracic vertebral fracture [Recovering/Resolving]
  - Surgery [Recovering/Resolving]
  - Dysarthria [Recovering/Resolving]
  - Transient ischaemic attack [Recovering/Resolving]
  - Dysphonia [Recovering/Resolving]
  - Cough [Recovering/Resolving]
  - Throat irritation [Recovering/Resolving]
  - Dysphonia [Recovering/Resolving]
  - Throat irritation [Recovering/Resolving]
  - Drug dose omission [Unknown]
  - Device malfunction [Unknown]
  - Product quality issue [Unknown]
  - Wrong drug administered [Unknown]
  - Diarrhoea [Recovering/Resolving]
